FAERS Safety Report 16821913 (Version 1)
Quarter: 2019Q3

REPORT INFORMATION
  Report Type: Spontaneous
  Country: US (occurrence: US)
  Receive Date: 20190918
  Receipt Date: 20190918
  Transmission Date: 20191005
  Serious: No
  Sender: FDA-Public Use
  Company Number: US-009507513-1908USA008077

PATIENT
  Sex: Male

DRUGS (2)
  1. VARIVAX [Suspect]
     Active Substance: VARICELLA-ZOSTER VIRUS STRAIN OKA/MERCK LIVE ANTIGEN
     Indication: PROPHYLAXIS
     Route: 058
  2. STERILE DILUENT (WATER) [Suspect]
     Active Substance: WATER
     Indication: PROPHYLAXIS
     Route: 058

REACTIONS (5)
  - Herpes zoster [Recovered/Resolved]
  - Livedo reticularis [Recovered/Resolved]
  - Antibody test negative [Recovered/Resolved]
  - Urticaria [Recovered/Resolved]
  - Ill-defined disorder [Recovered/Resolved]
